FAERS Safety Report 23743901 (Version 2)
Quarter: 2024Q2

REPORT INFORMATION
  Report Type: Spontaneous
  Country: JP (occurrence: JP)
  Receive Date: 20240415
  Receipt Date: 20240423
  Transmission Date: 20240716
  Serious: No
  Sender: FDA-Public Use
  Company Number: JP-GLAXOSMITHKLINE-JP2024JPN045689

PATIENT

DRUGS (12)
  1. SOTROVIMAB [Suspect]
     Active Substance: SOTROVIMAB
     Indication: COVID-19
     Dosage: 500 MG/ 100 ML/ 30 MIN, ONCE
     Route: 042
     Dates: start: 20220710, end: 20220710
  2. ROSUVASTATIN [Concomitant]
     Active Substance: ROSUVASTATIN
     Indication: Hyperlipidaemia
     Dosage: 2.5 MG, AFTER BREAKFAST
     Dates: start: 2018
  3. VONOPRAZAN FUMARATE [Concomitant]
     Active Substance: VONOPRAZAN FUMARATE
     Indication: Gastrooesophageal reflux disease
     Dosage: 10 MG, AFTER BREAKFAST
  4. ASPIRIN [Concomitant]
     Active Substance: ASPIRIN
     Indication: Angina pectoris
     Dosage: 100 MG, AFTER BREAKFAST
     Dates: start: 2018
  5. FERRIC CITRATE ANHYDROUS [Concomitant]
     Active Substance: FERRIC CITRATE ANHYDROUS
     Indication: Hyperphosphataemia
     Dosage: 3 DF, AFTER EACH MEAL
     Dates: start: 202204
  6. AMLODIPINE [Concomitant]
     Active Substance: AMLODIPINE BESYLATE
     Indication: Hypertension
     Dosage: 2 DF, AFTER DINNER
  7. VALSARTAN [Concomitant]
     Active Substance: VALSARTAN
     Indication: Hypertension
     Dosage: 2 DF, AFTER DINNER
     Dates: start: 202207
  8. TRAZODONE [Concomitant]
     Active Substance: TRAZODONE HYDROCHLORIDE
     Indication: Depressed mood
     Dosage: 1 DF, BEFORE BEDTIME
     Dates: start: 202204, end: 20220720
  9. CALONAL [Concomitant]
     Active Substance: ACETAMINOPHEN
     Indication: Pyrexia
     Dosage: 2 DF, AT THE TIME OF PYREXIA
  10. CALONAL [Concomitant]
     Active Substance: ACETAMINOPHEN
     Dosage: 2 DF, ONCE
     Dates: start: 20220710, end: 20220710
  11. CALONAL [Concomitant]
     Active Substance: ACETAMINOPHEN
     Dosage: 2 DF, TWO TIMES
     Dates: start: 20220711, end: 20220712
  12. TELMISARTAN [Concomitant]
     Active Substance: TELMISARTAN
     Indication: Hypertension
     Dosage: UNK
     Dates: end: 202207

REACTIONS (4)
  - White blood cell count decreased [Recovered/Resolved]
  - Condition aggravated [Recovered/Resolved]
  - Malaise [Recovered/Resolved]
  - Decreased appetite [Recovered/Resolved]

NARRATIVE: CASE EVENT DATE: 20220711
